FAERS Safety Report 15190743 (Version 1)
Quarter: 2018Q4

REPORT INFORMATION
  Report Type: Spontaneous
  Country: US (occurrence: US)
  Receive Date: 20180724
  Receipt Date: 20180724
  Transmission Date: 20190204
  Serious: No
  Sender: FDA-Public Use
  Company Number: US-LNK INTERNATIONAL, INC.-2052662

PATIENT
  Sex: Female

DRUGS (2)
  1. MELOXICAM. [Concomitant]
     Active Substance: MELOXICAM
  2. NIGHTTIME SLEEP AID (DOXYLAMINE SUCCINATE) [Suspect]
     Active Substance: DOXYLAMINE SUCCINATE

REACTIONS (1)
  - Drug ineffective [None]
